FAERS Safety Report 4926639-2 (Version None)
Quarter: 2006Q1

REPORT INFORMATION
  Report Type: 
  Country: None (occurrence: None)
  Receive Date: 20060228
  Receipt Date: 20050516
  Transmission Date: 20060701
  Serious: No
  Sender: FDA-Public Use
  Company Number: US-GLAXOSMITHKLINE-A0558780A

PATIENT
  Age: 50 Year
  Sex: Male

DRUGS (5)
  1. LAMICTAL [Suspect]
     Indication: BIPOLAR DISORDER
     Dosage: 150MG PER DAY
     Route: 048
  2. SEROQUEL [Concomitant]
  3. ANTIHYPERTENSIVE [Concomitant]
  4. ANTI-CHOLESTEROL MEDICATION [Concomitant]
     Route: 065
  5. ANTIFUNGAL [Concomitant]

REACTIONS (1)
  - HAEMATURIA [None]
